FAERS Safety Report 17982885 (Version 2)
Quarter: 2020Q3

REPORT INFORMATION
  Report Type: Spontaneous
  Country: GB (occurrence: GB)
  Receive Date: 20200706
  Receipt Date: 20200710
  Transmission Date: 20201103
  Serious: Yes (Other)
  Sender: FDA-Public Use
  Company Number: GB-MYLANLABS-2020M1061692

PATIENT
  Age: 56 Year
  Sex: Female

DRUGS (2)
  1. FAMCICLOVIR. [Suspect]
     Active Substance: FAMCICLOVIR
     Indication: ANTIVIRAL PROPHYLAXIS
     Dosage: 250 MILLIGRAM, QD (AT NIGHT)
  2. LITAK [Suspect]
     Active Substance: CLADRIBINE
     Indication: PRIMARY PROGRESSIVE MULTIPLE SCLEROSIS
     Dosage: UNK

REACTIONS (3)
  - Eyelid oedema [Unknown]
  - Oedema peripheral [Unknown]
  - Off label use [Unknown]
